FAERS Safety Report 17055913 (Version 2)
Quarter: 2019Q4

REPORT INFORMATION
  Report Type: Spontaneous
  Country: PL (occurrence: PL)
  Receive Date: 20191120
  Receipt Date: 20191203
  Transmission Date: 20200122
  Serious: Yes (Hospitalization)
  Sender: FDA-Public Use
  Company Number: PL-CELLTRION INC.-2019PL026475

PATIENT

DRUGS (2)
  1. RITUXIMAB (UNKNOWN) [Suspect]
     Active Substance: RITUXIMAB
     Indication: PEMPHIGUS
     Dosage: 2 X 1 G, Q2W
     Route: 042
  2. RITUXIMAB (UNKNOWN) [Suspect]
     Active Substance: RITUXIMAB
     Dosage: 1 G, 2 WEEKS
     Route: 041

REACTIONS (4)
  - Condition aggravated [Recovering/Resolving]
  - Rash pustular [Recovering/Resolving]
  - Pemphigus [Recovering/Resolving]
  - Pustule [Recovering/Resolving]
